FAERS Safety Report 26206300 (Version 1)
Quarter: 2025Q4

REPORT INFORMATION
  Report Type: Spontaneous
  Country: CN (occurrence: CN)
  Receive Date: 20251229
  Receipt Date: 20251229
  Transmission Date: 20260117
  Serious: Yes (Other)
  Sender: SANOFI AVENTIS
  Company Number: CN-DialogSolutions-SAAVPROD-PI858154-C2

PATIENT
  Age: 70 Year
  Sex: Male

DRUGS (3)
  1. OXALIPLATIN [Suspect]
     Active Substance: OXALIPLATIN
     Indication: Adenocarcinoma gastric stage III
     Dosage: 200 MG (ON DAY 1)
     Dates: start: 2023
  2. TISLELIZUMAB [Suspect]
     Active Substance: TISLELIZUMAB
     Indication: Adenocarcinoma gastric stage III
     Dosage: 200 MG, Q3W (ON DAY 1)
     Dates: start: 2023, end: 20230609
  3. TEGAFUR [Suspect]
     Active Substance: TEGAFUR
     Indication: Adenocarcinoma gastric stage III
     Dosage: 60 MG, BID (OVER DAY 1 TO DAY 14)
     Dates: start: 2023

REACTIONS (13)
  - Papule [Recovered/Resolved]
  - Off label use [Recovered/Resolved]
  - Blister [Recovered/Resolved]
  - Acute kidney injury [Unknown]
  - Oliguria [Unknown]
  - Immune-mediated hepatitis [Unknown]
  - Cholestasis [Unknown]
  - Hepatic necrosis [Unknown]
  - Lymphocytic infiltration [Unknown]
  - Hepatic fibrosis [Unknown]
  - Nausea [Unknown]
  - Decreased appetite [Unknown]
  - Jaundice [Unknown]

NARRATIVE: CASE EVENT DATE: 20230101
